FAERS Safety Report 9262971 (Version 1)
Quarter: 2013Q2

REPORT INFORMATION
  Report Type: Spontaneous
  Country: US (occurrence: US)
  Receive Date: 20130430
  Receipt Date: 20130430
  Transmission Date: 20140414
  Serious: No
  Sender: FDA-Public Use
  Company Number: US-TEVA-397822USA

PATIENT
  Sex: Female

DRUGS (5)
  1. PROAIR HFA [Suspect]
     Indication: CHRONIC OBSTRUCTIVE PULMONARY DISEASE
     Dates: start: 20130409
  2. PROAIR HFA [Suspect]
     Indication: EMPHYSEMA
  3. OXYGEN [Concomitant]
     Indication: HYPOAESTHESIA
  4. SPRIVA [Concomitant]
     Indication: CHRONIC OBSTRUCTIVE PULMONARY DISEASE
  5. SPRIVA [Concomitant]
     Indication: EMPHYSEMA

REACTIONS (7)
  - Drug ineffective [Not Recovered/Not Resolved]
  - Product taste abnormal [Not Recovered/Not Resolved]
  - Fatigue [Not Recovered/Not Resolved]
  - Lung disorder [Unknown]
  - Musculoskeletal discomfort [Unknown]
  - Stress [Not Recovered/Not Resolved]
  - Renal disorder [Not Recovered/Not Resolved]
